FAERS Safety Report 7135702-X (Version None)
Quarter: 2010Q4

REPORT INFORMATION
  Report Type: 
  Country: None (occurrence: None)
  Receive Date: 20101203
  Receipt Date: 20101119
  Transmission Date: 20110411
  Serious: Yes (Death, Life-Threatening)
  Sender: FDA-Public Use
  Company Number: JP-PFIZER INC-JP-WYE-H06510108

PATIENT
  Age: 83 Year
  Sex: Male

DRUGS (12)
  1. ANCARON [Suspect]
     Indication: VENTRICULAR TACHYCARDIA
     Dosage: 200 MG, 1X/DAY
     Route: 048
     Dates: start: 20080618, end: 20080622
  2. ANCARON [Suspect]
     Dosage: 100 MG, 1X/DAY
     Route: 048
     Dates: start: 20080622, end: 20080624
  3. AMIODARONE HYDROCHLORIDE [Suspect]
     Indication: VENTRICULAR TACHYCARDIA
     Dosage: 1.25 MG/DL AT RATE OF 10 ML/MIN
     Route: 041
     Dates: start: 20080617, end: 20080617
  4. AMIODARONE HYDROCHLORIDE [Suspect]
     Dosage: 1.50 MG/DL AT RATE OF 33 ML/HR
     Route: 041
     Dates: start: 20080617, end: 20080617
  5. AMIODARONE HYDROCHLORIDE [Suspect]
     Dosage: 1.50 MG/DL AT RATE OF 17 ML/HR
     Route: 042
     Dates: start: 20080617, end: 20080620
  6. ZYVOX [Suspect]
     Dosage: 500 MG, 2X/DAY
     Route: 042
     Dates: start: 20080616, end: 20080623
  7. BLOPRESS [Concomitant]
     Dosage: UNK
     Route: 065
     Dates: end: 20080702
  8. CARVEDILOL [Concomitant]
     Dosage: UNK
     Route: 065
     Dates: end: 20080702
  9. DOBUTREX [Concomitant]
     Dosage: UNK
     Route: 042
     Dates: start: 20080616, end: 20080702
  10. FUTHAN [Concomitant]
     Dosage: UNK
     Route: 042
     Dates: start: 20080616, end: 20080702
  11. NOREPINEPHRINE [Concomitant]
     Dosage: UNK
     Route: 065
     Dates: start: 20080616, end: 20080702
  12. OMEPRAL [Concomitant]
     Dosage: UNK
     Route: 048
     Dates: end: 20080702

REACTIONS (3)
  - ANAEMIA [None]
  - JAUNDICE [None]
  - THROMBOCYTOPENIA [None]
